FAERS Safety Report 17688720 (Version 11)
Quarter: 2020Q4

REPORT INFORMATION
  Report Type: Report from Study
  Country: TR (occurrence: TR)
  Receive Date: 20200421
  Receipt Date: 20201021
  Transmission Date: 20210113
  Serious: Yes (Death, Hospitalization)
  Sender: FDA-Public Use
  Company Number: TR-SA-2020SA047780

PATIENT

DRUGS (40)
  1. POMALIDOMIDE [Suspect]
     Active Substance: POMALIDOMIDE
     Indication: PLASMA CELL MYELOMA
     Dosage: 4 MG, QD
     Route: 048
     Dates: start: 20200205, end: 20200219
  2. LANSOR [Concomitant]
     Active Substance: LANSOPRAZOLE
     Indication: PROPHYLAXIS
     Dosage: UNK
     Route: 048
     Dates: start: 2015
  3. CORDARON [Concomitant]
     Active Substance: AMIODARONE HYDROCHLORIDE
     Dosage: UNK
     Route: 048
     Dates: start: 20190426
  4. MEGAFLOR [Concomitant]
     Dosage: UNK
     Route: 048
     Dates: start: 20190521
  5. IPRASAL [Concomitant]
     Active Substance: ALBUTEROL SULFATE\IPRATROPIUM BROMIDE
     Dosage: UNK
     Route: 055
     Dates: start: 20191124
  6. FUROMID [FUROSEMIDE] [Concomitant]
     Dosage: UNK
     Route: 042
     Dates: start: 20200105
  7. BELOC ZOK [Concomitant]
     Active Substance: METOPROLOL SUCCINATE
     Dosage: 25 UNK
     Route: 048
     Dates: start: 20200116
  8. ONADRON [DEXAMETHASONE] [Concomitant]
     Dosage: UNK
     Route: 031
     Dates: start: 20200218
  9. ISATUXIMAB [Suspect]
     Active Substance: ISATUXIMAB
     Indication: PLASMA CELL MYELOMA
     Dosage: 10 MG/KG, QOW
     Route: 042
     Dates: start: 20200205, end: 20200205
  10. ISATUXIMAB [Suspect]
     Active Substance: ISATUXIMAB
     Dosage: 10 MG/KG, QW
     Route: 042
     Dates: start: 20171214, end: 20171214
  11. DEXAMETHASONE. [Suspect]
     Active Substance: DEXAMETHASONE
     Indication: PLASMA CELL MYELOMA
     Dosage: 8 MG, QW
     Route: 048
     Dates: start: 20200213, end: 20200213
  12. DUPHALAC [Concomitant]
     Active Substance: LACTULOSE
     Dosage: UNK
     Route: 048
     Dates: start: 20180416
  13. SYSTANE (HYPROMELLOSE 2910 (4000 MPA.S)) [Concomitant]
     Active Substance: HYPROMELLOSE 2910 (4000 MPA.S)
     Indication: PROPHYLAXIS
     Dosage: UNK
     Route: 047
     Dates: start: 20190723
  14. HUMULIN R [Concomitant]
     Active Substance: INSULIN HUMAN
     Dosage: UNK
     Route: 030
     Dates: start: 20200109
  15. PREDNOL [METHYLPREDNISOLONE] [Concomitant]
     Dosage: UNK
     Route: 048
     Dates: start: 20200218, end: 20200222
  16. DEXA-SINE [DEXAMETHASONE] [Concomitant]
     Indication: PROPHYLAXIS
     Dosage: UNK
     Route: 047
     Dates: start: 20190723
  17. OKSAPAR [Concomitant]
     Dosage: UNK
     Route: 030
     Dates: start: 20200116
  18. TEVAGRASTIM [Concomitant]
     Active Substance: FILGRASTIM
     Dosage: UNK
     Route: 030
     Dates: start: 20200218, end: 20200220
  19. NASTIFRAN [Concomitant]
     Dosage: UNK
     Route: 042
     Dates: start: 20200218, end: 20200221
  20. PREDNOL [METHYLPREDNISOLONE] [Concomitant]
     Dosage: UNK
     Route: 042
     Dates: start: 20200219, end: 20200222
  21. ZEFFIX [Concomitant]
     Active Substance: LAMIVUDINE
     Indication: PROPHYLAXIS
     Dosage: UNK
     Route: 048
     Dates: start: 2015
  22. VENTOLIN [Concomitant]
     Active Substance: ALBUTEROL SULFATE
     Dosage: UNK
     Route: 055
     Dates: start: 20200105
  23. TAZERACIN [Concomitant]
     Dosage: UNK
     Route: 042
     Dates: start: 20200105
  24. NAZALNEM [Concomitant]
     Dosage: UNK
     Route: 045
     Dates: start: 20200110
  25. TARGOCID [Concomitant]
     Active Substance: TEICOPLANIN
     Dosage: UNK
     Route: 042
     Dates: start: 20200121
  26. FUNGOSTATIN [Concomitant]
     Active Substance: NYSTATIN
     Dosage: UNK
     Route: 048
     Dates: start: 20200218
  27. POMALIDOMIDE [Suspect]
     Active Substance: POMALIDOMIDE
     Dosage: 4 MG, QD
     Route: 048
     Dates: start: 20171214, end: 20171214
  28. ATORVASTATINE [ATORVASTATIN] [Concomitant]
     Active Substance: ATORVASTATIN
     Dosage: UNK
     Route: 048
     Dates: start: 20191210
  29. BUDESONID [Concomitant]
     Active Substance: BUDESONIDE
     Dosage: UNK
     Route: 055
     Dates: start: 20200105
  30. MUCINAC [Concomitant]
     Dosage: UNK
     Route: 042
     Dates: start: 20200116
  31. ECOPIRIN [Concomitant]
     Active Substance: ASPIRIN
     Dosage: 100 UNK
     Route: 048
     Dates: start: 20200116
  32. CANDISEPT [Concomitant]
     Dosage: UNK
     Route: 042
     Dates: start: 20200218
  33. SODIUM BICARBONATE. [Concomitant]
     Active Substance: SODIUM BICARBONATE
     Dosage: UNK
     Route: 042
     Dates: start: 20200218
  34. TRIFLUCAN [Concomitant]
     Active Substance: FLUCONAZOLE
     Route: 042
  35. ERYTHROCYTES [Concomitant]
     Active Substance: HUMAN RED BLOOD CELL
     Dosage: UNK
     Route: 042
     Dates: start: 20200219, end: 20200219
  36. DEXAMETHASONE. [Suspect]
     Active Substance: DEXAMETHASONE
     Dosage: 40 MG, QW
     Route: 048
     Dates: start: 20171214, end: 20171214
  37. LIXIANA [Concomitant]
     Active Substance: EDOXABAN TOSYLATE
     Dosage: UNK
     Route: 048
     Dates: start: 20190702
  38. KLAMER [Concomitant]
     Dosage: UNK MG
     Route: 048
     Dates: start: 20200106
  39. FENOKODIN [Concomitant]
     Dosage: UNK
     Route: 048
     Dates: start: 20200107
  40. POT K [Concomitant]
     Dosage: UNK
     Route: 048
     Dates: start: 20200221, end: 20200221

REACTIONS (3)
  - Oedema peripheral [Recovered/Resolved]
  - Arteriosclerosis coronary artery [Fatal]
  - Pneumonia [Recovered/Resolved]

NARRATIVE: CASE EVENT DATE: 20200215
